FAERS Safety Report 8201926-3 (Version None)
Quarter: 2012Q1

REPORT INFORMATION
  Report Type: 
  Country: None (occurrence: None)
  Receive Date: 20120312
  Receipt Date: 20120207
  Transmission Date: 20120608
  Serious: Yes (Hospitalization)
  Sender: FDA-Public Use
  Company Number: PHHO2012FR003713

PATIENT

DRUGS (1)
  1. SANDOSTATIN LAR [Suspect]
     Indication: IDIOPATHIC PULMONARY FIBROSIS
     Route: 030

REACTIONS (2)
  - DEHYDRATION [None]
  - DIARRHOEA [None]
